FAERS Safety Report 5368988-2 (Version None)
Quarter: 2007Q2

REPORT INFORMATION
  Report Type: 
  Country: None (occurrence: None)
  Receive Date: 20070625
  Receipt Date: 20061207
  Transmission Date: 20071010
  Serious: No
  Sender: FDA-Public Use
  Company Number: US-ASTRAZENECA-2006UW27224

PATIENT
  Age: 75 Year
  Sex: Female
  Weight: 83 kg

DRUGS (12)
  1. CRESTOR [Suspect]
     Indication: BLOOD CHOLESTEROL INCREASED
     Route: 048
     Dates: start: 20061101
  2. PROTONIX [Concomitant]
  3. ELAVIL [Concomitant]
     Route: 048
  4. MOBIC [Concomitant]
  5. PROPRANOLOL [Concomitant]
  6. ASPIRIN [Concomitant]
  7. ZANTAC [Concomitant]
  8. EVISTA [Concomitant]
  9. LOTREX [Concomitant]
  10. VITAMIN D [Concomitant]
  11. LOMOTIL [Concomitant]
  12. BENTYL [Concomitant]

REACTIONS (2)
  - DYSGEUSIA [None]
  - GLOSSODYNIA [None]
